FAERS Safety Report 4421560-0 (Version None)
Quarter: 2004Q3

REPORT INFORMATION
  Report Type: 
  Country: None (occurrence: None)
  Receive Date: 20040804
  Receipt Date: 20040720
  Transmission Date: 20050211
  Serious: Yes (Other)
  Sender: FDA-Public Use
  Company Number: CEL-2004-01480-ROC

PATIENT
  Age: 6 Year
  Sex: Male

DRUGS (2)
  1. METADATE CD [Suspect]
     Indication: ATTENTION DEFICIT/HYPERACTIVITY DISORDER
     Dosage: 10MG INCREASED TO 20MG DAILY, ROUTE PO
     Route: 048
     Dates: start: 20040607, end: 20040703
  2. STRATTERA [Concomitant]

REACTIONS (3)
  - HEADACHE [None]
  - OPTIC ATROPHY [None]
  - OPTIC NERVE INJURY [None]
